FAERS Safety Report 14169972 (Version 1)
Quarter: 2017Q4

REPORT INFORMATION
  Report Type: Spontaneous
  Country: US (occurrence: US)
  Receive Date: 20171108
  Receipt Date: 20171108
  Transmission Date: 20180321
  Serious: No
  Sender: FDA-Public Use
  Company Number: US-PFIZER INC-2017478484

PATIENT
  Sex: Female

DRUGS (2)
  1. ADVIL [Suspect]
     Active Substance: IBUPROFEN
     Indication: NASOPHARYNGITIS
     Dosage: UNK, 1X/DAY (NIGHTIME)
  2. ADVIL [Suspect]
     Active Substance: IBUPROFEN
     Indication: SINUSITIS

REACTIONS (1)
  - Drug ineffective [Unknown]
